FAERS Safety Report 17455264 (Version 1)
Quarter: 2020Q1

REPORT INFORMATION
  Report Type: Spontaneous
  Country: US (occurrence: US)
  Receive Date: 20200212
  Receipt Date: 20200212
  Transmission Date: 20200409
  Serious: No
  Sender: FDA-Public Use
  Company Number: None

PATIENT
  Age: 61 Year
  Sex: Female

DRUGS (1)
  1. IBRANCE [Suspect]
     Active Substance: PALBOCICLIB
     Route: 048
     Dates: start: 20191227

REACTIONS (6)
  - Swelling [None]
  - Fluid retention [None]
  - Therapy change [None]
  - Dyspnoea [None]
  - Vomiting [None]
  - Urinary tract infection [None]

NARRATIVE: CASE EVENT DATE: 20200122
